FAERS Safety Report 7630701-3 (Version None)
Quarter: 2011Q3

REPORT INFORMATION
  Report Type: 
  Country: None (occurrence: None)
  Receive Date: 20110722
  Receipt Date: 20110713
  Transmission Date: 20111222
  Serious: Yes (Other)
  Sender: FDA-Public Use
  Company Number: US-AMGEN-USASP2011035612

PATIENT
  Age: 49 Year
  Sex: Female

DRUGS (9)
  1. PLAQUENIL [Concomitant]
     Dosage: UNK
  2. ENBREL [Suspect]
     Indication: RHEUMATOID ARTHRITIS
     Dosage: 50 MG, QWK
     Dates: start: 20110620, end: 20110706
  3. AMBIEN [Concomitant]
     Dosage: UNK
  4. DILAUDID [Concomitant]
     Dosage: UNK
  5. METHOTREXATE [Concomitant]
     Dosage: UNK
  6. HYDROCORTISONE [Concomitant]
     Route: 048
  7. NEURONTIN [Concomitant]
     Dosage: UNK
  8. OXYCONTIN [Concomitant]
     Dosage: UNK
  9. ROBAXIN [Concomitant]
     Dosage: UNK

REACTIONS (10)
  - DIPLOPIA [None]
  - DIZZINESS [None]
  - FATIGUE [None]
  - HEADACHE [None]
  - ASTHENIA [None]
  - HYPERACUSIS [None]
  - VISUAL IMPAIRMENT [None]
  - CONFUSIONAL STATE [None]
  - GAIT DISTURBANCE [None]
  - AMNESIA [None]
